FAERS Safety Report 7506309-7 (Version None)
Quarter: 2011Q2

REPORT INFORMATION
  Report Type: 
  Country: None (occurrence: None)
  Receive Date: 20110526
  Receipt Date: 20101027
  Transmission Date: 20111010
  Serious: No
  Sender: FDA-Public Use
  Company Number: US-ABBOTT-10P-163-0682332-00

PATIENT
  Sex: Female
  Weight: 89.892 kg

DRUGS (2)
  1. ZEMPLAR [Suspect]
     Indication: RENAL FAILURE CHRONIC
  2. ZEMPLAR [Suspect]
     Indication: HYPERPARATHYROIDISM SECONDARY
     Dosage: ANYWHERE BETWEEN 5 AND 7 DAYS A WEEK
     Dates: start: 20080101

REACTIONS (1)
  - EAR INFECTION [None]
